FAERS Safety Report 14975290 (Version 4)
Quarter: 2018Q4

REPORT INFORMATION
  Report Type: Report from Study
  Country: PA (occurrence: PA)
  Receive Date: 20180605
  Receipt Date: 20181119
  Transmission Date: 20190204
  Serious: Yes (Hospitalization)
  Sender: FDA-Public Use
  Company Number: PHHY2018PA014069

PATIENT
  Age: 66 Year
  Sex: Male
  Weight: 72.56 kg

DRUGS (1)
  1. TASIGNA [Suspect]
     Active Substance: NILOTINIB
     Indication: CHRONIC MYELOID LEUKAEMIA
     Dosage: 200 MG, QID (4 DAILY) (2 IN AM AND 2 IN PM)
     Route: 048

REACTIONS (11)
  - Feeling abnormal [Unknown]
  - Myalgia [Unknown]
  - Catheter site related reaction [Unknown]
  - Malaise [Recovering/Resolving]
  - Asthenia [Recovering/Resolving]
  - Abdominal pain upper [Recovered/Resolved]
  - Nephrolithiasis [Recovering/Resolving]
  - Bone pain [Unknown]
  - Eating disorder [Recovering/Resolving]
  - Haemoglobin decreased [Unknown]
  - Complication associated with device [Unknown]

NARRATIVE: CASE EVENT DATE: 201803
